FAERS Safety Report 4631898-X (Version None)
Quarter: 2005Q2

REPORT INFORMATION
  Report Type: 
  Country: None (occurrence: None)
  Receive Date: 20050411
  Receipt Date: 20050404
  Transmission Date: 20051028
  Serious: Yes (Death)
  Sender: FDA-Public Use
  Company Number: US-BRISTOL-MYERS SQUIBB COMPANY-12923140

PATIENT
  Age: 46 Year
  Sex: Female

DRUGS (1)
  1. SERZONE [Suspect]
     Route: 048
     Dates: start: 20001101, end: 20030301

REACTIONS (1)
  - ACUTE MYOCARDIAL INFARCTION [None]
